FAERS Safety Report 25284210 (Version 1)
Quarter: 2025Q2

REPORT INFORMATION
  Report Type: Spontaneous
  Country: US (occurrence: None)
  Receive Date: 20250508
  Receipt Date: 20250508
  Transmission Date: 20250716
  Serious: Yes (Other)
  Sender: FDA-CTU
  Company Number: None

PATIENT
  Age: 71 Year
  Sex: Male
  Weight: 82.1 kg

DRUGS (8)
  1. PIOGLITAZONE [Suspect]
     Active Substance: PIOGLITAZONE
     Indication: Type 2 diabetes mellitus
     Dosage: FREQUENCY : DAILY;?
     Route: 048
     Dates: start: 20240501, end: 20250425
  2. TAMSULOSIN [Concomitant]
     Active Substance: TAMSULOSIN
  3. EMPAGLIFLOZIN [Concomitant]
     Active Substance: EMPAGLIFLOZIN
  4. CHOLECALCIFEROL [Concomitant]
     Active Substance: CHOLECALCIFEROL
  5. ASPIRIN [Concomitant]
     Active Substance: ASPIRIN
  6. SEMAGLUTIDE [Concomitant]
     Active Substance: SEMAGLUTIDE
  7. NIFEDIPINE [Concomitant]
     Active Substance: NIFEDIPINE
  8. ROSUVASTATIN [Concomitant]
     Active Substance: ROSUVASTATIN

REACTIONS (6)
  - Renal impairment [None]
  - Hydronephrosis [None]
  - Bladder hypertrophy [None]
  - Bladder neoplasm [None]
  - Bladder transitional cell carcinoma [None]
  - Prostate cancer [None]

NARRATIVE: CASE EVENT DATE: 20250227
